FAERS Safety Report 8238875-0 (Version None)
Quarter: 2012Q1

REPORT INFORMATION
  Report Type: 
  Country: None (occurrence: None)
  Receive Date: 20120327
  Receipt Date: 20120323
  Transmission Date: 20120608
  Serious: Yes (Other)
  Sender: FDA-Public Use
  Company Number: GB-BAYER-2012-029051

PATIENT
  Age: 43 Year
  Sex: Female

DRUGS (1)
  1. CLOTRIMAZOLE [Suspect]
     Indication: VULVOVAGINAL CANDIDIASIS

REACTIONS (2)
  - COUGH [None]
  - VAGINAL HAEMORRHAGE [None]
